FAERS Safety Report 4816637-1 (Version None)
Quarter: 2005Q4

REPORT INFORMATION
  Report Type: 
  Country: None (occurrence: None)
  Receive Date: 20051031
  Receipt Date: 20051031
  Transmission Date: 20060501
  Serious: Yes (Hospitalization, Other)
  Sender: FDA-Public Use
  Company Number: None

PATIENT
  Sex: Female
  Weight: 93.7 kg

DRUGS (15)
  1. CYCLOPHOSPHAMIDE [Suspect]
     Indication: ACUTE LYMPHOCYTIC LEUKAEMIA
     Dosage: SEE IMAGE
     Route: 042
     Dates: start: 20050819
  2. ALLOPURINOL [Suspect]
     Dosage: SEE IMAGE
     Route: 048
     Dates: start: 20050819
  3. DAUNORUBICIN [Suspect]
     Dosage: SEE IMAGE
     Route: 042
     Dates: start: 20050819
  4. VINCRISTINE [Suspect]
     Dosage: SEE IMAGE
     Route: 042
     Dates: start: 20050819, end: 20050916
  5. DEXAMETHASONE [Suspect]
     Dosage: SEE IMAGE
     Route: 048
     Dates: start: 20050819
  6. ELSPAR [Suspect]
     Dosage: SEE IMAGE
     Route: 058
     Dates: start: 20050819
  7. NEUPOGEN [Suspect]
     Dosage: SEE IMAGE
     Route: 058
     Dates: start: 20050819
  8. METHOTREXATE [Suspect]
     Dosage: SEE IMAGE
     Route: 037
     Dates: start: 20050819, end: 20050917
  9. CYCLOPHOSPHAMIDE [Suspect]
     Dosage: SEE IMAGE
     Route: 042
     Dates: start: 20050819
  10. CYTARABINE [Suspect]
     Dosage: SEE IMAGE
     Route: 042
     Dates: start: 20050819
  11. ELSPAR [Suspect]
     Dosage: SEE IMAGE
     Route: 058
     Dates: start: 20050819
  12. DEXAMETHASONE [Suspect]
     Dosage: SEE IMAGE
     Route: 047
     Dates: start: 20050819
  13. G-CSF [Suspect]
     Dosage: SEE IMAGE
     Route: 058
     Dates: start: 20050819
  14. COTRIMOXAZOLE DS [Suspect]
     Dosage: SEE IMAGE
     Route: 048
     Dates: start: 20050819
  15. HYDROCORTISONE [Suspect]
     Dosage: SEE IMAGE
     Route: 039

REACTIONS (2)
  - CHEST PAIN [None]
  - HERPES ZOSTER [None]
